FAERS Safety Report 7284860-5 (Version None)
Quarter: 2011Q1

REPORT INFORMATION
  Report Type: 
  Country: None (occurrence: None)
  Receive Date: 20110210
  Receipt Date: 20110113
  Transmission Date: 20110831
  Serious: No
  Sender: FDA-Public Use
  Company Number: US-B.I. PHARMACEUTICALS,INC./RIDGEFIELD-2011-BP-02220BP

PATIENT
  Sex: Male

DRUGS (1)
  1. MIRAPEX [Suspect]
     Dates: start: 19980101, end: 20081201

REACTIONS (3)
  - AGGRESSION [None]
  - PATHOLOGICAL GAMBLING [None]
  - ALCOHOL ABUSE [None]
